FAERS Safety Report 12472018 (Version 1)
Quarter: 2016Q2

REPORT INFORMATION
  Report Type: Spontaneous
  Country: US (occurrence: US)
  Receive Date: 20160616
  Receipt Date: 20160616
  Transmission Date: 20160815
  Serious: Yes (Other)
  Sender: FDA-Public Use
  Company Number: US-SAGENTPRD-2016-US-000014

PATIENT
  Age: 43 Year
  Sex: Female
  Weight: 64 kg

DRUGS (6)
  1. PROPOFOL. [Concomitant]
     Active Substance: PROPOFOL
     Dates: start: 20160512, end: 20160512
  2. ROCURONIUM BROMIDE INJECTION, 50 MG/5 ML [Suspect]
     Active Substance: ROCURONIUM BROMIDE
     Route: 042
     Dates: start: 20160512, end: 20160512
  3. FENTANYL. [Concomitant]
     Active Substance: FENTANYL
     Dates: start: 20160512, end: 20160512
  4. LIDOCAINE. [Concomitant]
     Active Substance: LIDOCAINE
     Dates: start: 20160512, end: 20160512
  5. DEXAMETHASONE. [Concomitant]
     Active Substance: DEXAMETHASONE
     Dates: start: 20160512, end: 20160512
  6. SUCCINYLCHOLINE [Concomitant]
     Active Substance: SUCCINYLCHOLINE
     Dates: start: 20160512, end: 20160512

REACTIONS (1)
  - Drug effect increased [Unknown]

NARRATIVE: CASE EVENT DATE: 20160512
